FAERS Safety Report 11907007 (Version 1)
Quarter: 2016Q1

REPORT INFORMATION
  Report Type: Spontaneous
  Country: FR (occurrence: FR)
  Receive Date: 20160111
  Receipt Date: 20160111
  Transmission Date: 20160526
  Serious: Yes (Hospitalization, Other)
  Sender: FDA-Public Use
  Company Number: FR-BAXTER-2015BAX071309

PATIENT
  Age: 61 Year
  Sex: Female

DRUGS (14)
  1. FARMORUBICINE [Suspect]
     Active Substance: EPIRUBICIN HYDROCHLORIDE
     Indication: BREAST CANCER METASTATIC
     Dosage: ONCE IN ONE CYCLE/ 6 CYCLES
     Route: 042
     Dates: start: 20100810, end: 20101126
  2. PACLITAXEL. [Suspect]
     Active Substance: PACLITAXEL
     Indication: BREAST CANCER METASTATIC
     Dosage: ON D1, D8, D15
     Route: 042
     Dates: start: 20150213, end: 20150731
  3. AVASTIN [Suspect]
     Active Substance: BEVACIZUMAB
     Dosage: 5TH CYCLE
     Route: 042
     Dates: start: 20151106
  4. AROMASINE [Suspect]
     Active Substance: EXEMESTANE
     Indication: PRODUCT USED FOR UNKNOWN INDICATION
     Route: 065
     Dates: start: 201101, end: 201501
  5. XGEVA [Suspect]
     Active Substance: DENOSUMAB
     Indication: PRODUCT USED FOR UNKNOWN INDICATION
     Route: 065
     Dates: start: 2014, end: 201501
  6. FLUOROURACIL. [Suspect]
     Active Substance: FLUOROURACIL
     Indication: BREAST CANCER METASTATIC
     Dosage: ONCE IN ONE CYCLE / [6 CYCLES]
     Route: 042
     Dates: start: 20100810, end: 20101126
  7. XELODA [Suspect]
     Active Substance: CAPECITABINE
     Indication: BREAST CANCER METASTATIC
     Dosage: FOR 2 WEEKS OUT OF 3 WEEKS
     Route: 048
     Dates: start: 20150814, end: 201511
  8. GABAPENTIN. [Concomitant]
     Active Substance: GABAPENTIN
     Indication: PRODUCT USED FOR UNKNOWN INDICATION
     Dosage: LONG TERM
     Route: 065
  9. ENDOXAN 1000 MG, POUDRE POUR SOLUTION INJECTABLE [Suspect]
     Active Substance: CYCLOPHOSPHAMIDE
     Indication: BREAST CANCER METASTATIC
     Dosage: ONCE IN ONE CYCLE/ 6 CYCLES
     Route: 042
     Dates: start: 20100810, end: 20101126
  10. AVASTIN [Suspect]
     Active Substance: BEVACIZUMAB
     Indication: BREAST CANCER METASTATIC
     Dosage: ON D1, D8, D15
     Route: 042
     Dates: start: 20150213, end: 20150731
  11. LAROXYL [Concomitant]
     Active Substance: AMITRIPTYLINE
     Indication: PRODUCT USED FOR UNKNOWN INDICATION
     Dosage: LONG TERM
     Route: 065
  12. DOLIPRANE [Concomitant]
     Active Substance: ACETAMINOPHEN
     Indication: PRODUCT USED FOR UNKNOWN INDICATION
     Dosage: LONG TERM
     Route: 065
  13. AVASTIN [Suspect]
     Active Substance: BEVACIZUMAB
     Dosage: ON D1 AND D21
     Route: 042
     Dates: start: 20150814, end: 20151106
  14. DECAPEPTYL (ACETATE) [Suspect]
     Active Substance: TRIPTORELIN ACETATE
     Indication: PRODUCT USED FOR UNKNOWN INDICATION
     Route: 065
     Dates: start: 201010, end: 201501

REACTIONS (5)
  - Congestive cardiomyopathy [Unknown]
  - Cardiac failure [Recovering/Resolving]
  - Pulmonary oedema [Unknown]
  - Malignant neoplasm progression [Unknown]
  - Pleural effusion [Unknown]

NARRATIVE: CASE EVENT DATE: 201501
